FAERS Safety Report 10402080 (Version 1)
Quarter: 2014Q3

REPORT INFORMATION
  Report Type: Spontaneous
  Country: US (occurrence: None)
  Receive Date: 20140820
  Receipt Date: 20140820
  Transmission Date: 20150326
  Serious: Yes (Disabling)
  Sender: FDA-Public Use
  Company Number: None

PATIENT
  Age: 30 Year
  Sex: Male
  Weight: 149.69 kg

DRUGS (1)
  1. CYTOXAN [Suspect]
     Active Substance: CYCLOPHOSPHAMIDE
     Indication: GRANULOMATOSIS WITH POLYANGIITIS
     Dosage: INTO VEIN
     Route: 042
     Dates: start: 20081217, end: 20090317

REACTIONS (1)
  - Azoospermia [None]

NARRATIVE: CASE EVENT DATE: 20081217
